FAERS Safety Report 7336327-3 (Version None)
Quarter: 2011Q1

REPORT INFORMATION
  Report Type: 
  Country: None (occurrence: None)
  Receive Date: 20110307
  Receipt Date: 20110228
  Transmission Date: 20110831
  Serious: Yes (Death, Other)
  Sender: FDA-Public Use
  Company Number: US-PFIZER INC-2011004563

PATIENT
  Sex: Male

DRUGS (1)
  1. REVATIO [Suspect]
     Indication: PULMONARY HYPERTENSION
     Dosage: 20 MG, 3X/DAY
     Route: 048
     Dates: start: 20101103, end: 20101213

REACTIONS (5)
  - SWELLING [None]
  - DYSPNOEA [None]
  - ACUTE RESPIRATORY FAILURE [None]
  - HYPOXIA [None]
  - SKIN ULCER [None]
